FAERS Safety Report 10735243 (Version 1)
Quarter: 2015Q1

REPORT INFORMATION
  Report Type: Spontaneous
  Country: US (occurrence: US)
  Receive Date: 20150125
  Receipt Date: 20150125
  Transmission Date: 20150721
  Serious: No
  Sender: FDA-Public Use
  Company Number: US-GLAXOSMITHKLINE-A1058307A

PATIENT

DRUGS (2)
  1. MEPRON [Suspect]
     Active Substance: ATOVAQUONE
     Indication: SURGERY
     Dosage: 750MG/ 5ML, UNKNOWN DOSING
     Route: 065
  2. MEPRON [Suspect]
     Active Substance: ATOVAQUONE
     Indication: FRACTURE

REACTIONS (2)
  - Surgery [Unknown]
  - Fracture [Unknown]
